FAERS Safety Report 16568298 (Version 3)
Quarter: 2019Q3

REPORT INFORMATION
  Report Type: Spontaneous
  Country: DE (occurrence: DE)
  Receive Date: 20190712
  Receipt Date: 20190723
  Transmission Date: 20191004
  Serious: Yes (Life-Threatening, Other)
  Sender: FDA-Public Use
  Company Number: DE-ASCEND THERAPEUTICS-2070749

PATIENT
  Age: 50 Year
  Sex: Female

DRUGS (2)
  1. GYNOKADIN DOSIERGEL (ESTRADIOL) (GEL) [Suspect]
     Active Substance: ESTRADIOL
     Route: 062
     Dates: start: 2016, end: 201807
  2. ESTROGEL [Suspect]
     Active Substance: ESTRADIOL
     Indication: MENOPAUSAL SYMPTOMS
     Route: 062
     Dates: start: 2016, end: 201807

REACTIONS (7)
  - Osteolysis [Not Recovered/Not Resolved]
  - HER-2 positive breast cancer [Not Recovered/Not Resolved]
  - Metastases to spine [Not Recovered/Not Resolved]
  - Metastases to liver [Recovered/Resolved]
  - Breast enlargement [Recovered/Resolved with Sequelae]
  - Lymphadenopathy [Not Recovered/Not Resolved]
  - Thoracic vertebral fracture [Recovered/Resolved with Sequelae]
